FAERS Safety Report 8103334-2 (Version None)
Quarter: 2012Q1

REPORT INFORMATION
  Report Type: 
  Country: None (occurrence: None)
  Receive Date: 20120127
  Receipt Date: 20120117
  Transmission Date: 20120608
  Serious: Yes (Other)
  Sender: FDA-Public Use
  Company Number: 2012PL000013

PATIENT
  Age: 53 Year
  Sex: Female
  Weight: 73.9363 kg

DRUGS (7)
  1. ROSUVASTATIN [Concomitant]
  2. LOTREL [Concomitant]
  3. LEXAPRO [Concomitant]
  4. IRON [Concomitant]
  5. LOTRONEX [Suspect]
     Indication: IRRITABLE BOWEL SYNDROME
     Dosage: 1.0 MG;QD;PO
     Route: 048
     Dates: start: 20110101, end: 20120115
  6. ACIPHEX [Concomitant]
  7. ASPIRIN [Concomitant]

REACTIONS (2)
  - COLITIS ISCHAEMIC [None]
  - ABDOMINAL PAIN [None]
